FAERS Safety Report 16587243 (Version 2)
Quarter: 2019Q3

REPORT INFORMATION
  Report Type: Spontaneous
  Country: US (occurrence: US)
  Receive Date: 20190717
  Receipt Date: 20190903
  Transmission Date: 20191004
  Serious: No
  Sender: FDA-Public Use
  Company Number: US-PFIZER INC-2019300097

PATIENT
  Age: 72 Year
  Sex: Female
  Weight: 97.52 kg

DRUGS (7)
  1. LYRICA [Suspect]
     Active Substance: PREGABALIN
     Dosage: 150 MG, UNK
     Dates: start: 2010, end: 2012
  2. LYRICA [Suspect]
     Active Substance: PREGABALIN
     Dosage: 50 MG, 2X/DAY ((SHE HAS BEEN RATIONING TO 2 TIMES A DAY WAITING)
  3. LYRICA [Suspect]
     Active Substance: PREGABALIN
     Dosage: 2 DF, DAILY (ONLY 2 A DAY)
  4. LYRICA [Suspect]
     Active Substance: PREGABALIN
     Indication: NEUROPATHY PERIPHERAL
     Dosage: 50 MG, 4X/DAY
     Route: 048
  5. LYRICA [Suspect]
     Active Substance: PREGABALIN
     Dosage: 50 MG, 4X/DAY
     Route: 048
  6. LYRICA [Suspect]
     Active Substance: PREGABALIN
     Dosage: 50 MG, 3X/DAY
  7. BUDESONIDE EC [Concomitant]
     Active Substance: BUDESONIDE
     Dosage: 3 DF, 1X/DAY (3 TABLETS BY MOUTH IN THE AM)
     Route: 048

REACTIONS (7)
  - Gait disturbance [Unknown]
  - Intentional product misuse [Unknown]
  - Weight increased [Unknown]
  - Dysphagia [Unknown]
  - Drug ineffective [Unknown]
  - Product size issue [Unknown]
  - Limb injury [Unknown]
